FAERS Safety Report 8597632-6 (Version None)
Quarter: 2012Q3

REPORT INFORMATION
  Report Type: 
  Country: None (occurrence: None)
  Receive Date: 20120816
  Receipt Date: 20120808
  Transmission Date: 20120928
  Serious: Yes (Other)
  Sender: FDA-Public Use
  Company Number: US-US-EMD SERONO, INC.-7153907

PATIENT
  Sex: Female

DRUGS (1)
  1. INTERFERON BETA-1A [Suspect]
     Indication: MULTIPLE SCLEROSIS
     Route: 058
     Dates: start: 20120411

REACTIONS (4)
  - ABDOMINAL DISCOMFORT [None]
  - BASAL CELL CARCINOMA [None]
  - INJECTION SITE ERYTHEMA [None]
  - MYALGIA [None]
